FAERS Safety Report 9052433 (Version 1)
Quarter: 2013Q1

REPORT INFORMATION
  Report Type: Spontaneous
  Country: IT (occurrence: IT)
  Receive Date: 20130207
  Receipt Date: 20130207
  Transmission Date: 20140127
  Serious: Yes (Hospitalization)
  Sender: FDA-Public Use
  Company Number: IT-PFIZER INC-2013048262

PATIENT
  Age: 65 Year
  Sex: Male

DRUGS (2)
  1. CARBOPLATIN [Suspect]
     Indication: LUNG NEOPLASM MALIGNANT
     Dosage: 450 MG, TOTAL DOSE
     Route: 042
     Dates: start: 20130123, end: 20130123
  2. DEXAMETASON [Concomitant]

REACTIONS (4)
  - Abdominal pain upper [Recovered/Resolved]
  - Disorientation [Recovered/Resolved]
  - Loss of consciousness [Recovered/Resolved]
  - Hot flush [Recovered/Resolved]
